FAERS Safety Report 5328132-4 (Version None)
Quarter: 2007Q2

REPORT INFORMATION
  Report Type: 
  Country: None (occurrence: None)
  Receive Date: 20070514
  Receipt Date: 20070504
  Transmission Date: 20071010
  Serious: Yes (Disabling, Other)
  Sender: FDA-Public Use
  Company Number: 16368

PATIENT
  Age: 47 Year
  Sex: Female

DRUGS (4)
  1. CARBOPLATIN [Suspect]
     Indication: ENDOMETRIAL CANCER
     Dosage: 6 AUC
  2. CARBOPLATIN [Suspect]
     Indication: ENDOMETRIAL CANCER
     Dosage: 6 AUC
  3. PACLITAXEL [Suspect]
     Indication: ENDOMETRIAL CANCER
     Dosage: 175 MG/M2
  4. DOCETAXEL [Suspect]
     Indication: ENDOMETRIAL CANCER
     Dosage: 80 MG/M2

REACTIONS (7)
  - AREFLEXIA [None]
  - BURNING SENSATION [None]
  - GAIT DISTURBANCE [None]
  - NEURALGIA [None]
  - PERIPHERAL SENSORY NEUROPATHY [None]
  - RECURRENT CANCER [None]
  - RESTLESS LEGS SYNDROME [None]
